FAERS Safety Report 20222746 (Version 1)
Quarter: 2021Q4

REPORT INFORMATION
  Report Type: Spontaneous
  Country: JP (occurrence: JP)
  Receive Date: 20211223
  Receipt Date: 20211223
  Transmission Date: 20220303
  Serious: Yes (Hospitalization, Other)
  Sender: FDA-Public Use
  Company Number: JP-PFIZER INC-202101630613

PATIENT
  Age: 63 Year
  Sex: Female
  Weight: 52 kg

DRUGS (10)
  1. EFFEXOR [Suspect]
     Active Substance: VENLAFAXINE HYDROCHLORIDE
     Indication: Depression
     Dosage: 37.5 MG
     Route: 048
     Dates: start: 20210830
  2. EFFEXOR [Suspect]
     Active Substance: VENLAFAXINE HYDROCHLORIDE
     Dosage: 75 MG
     Route: 048
     Dates: start: 20210906
  3. EFFEXOR [Suspect]
     Active Substance: VENLAFAXINE HYDROCHLORIDE
     Dosage: 150 MG
     Route: 048
     Dates: start: 20210913
  4. EFFEXOR [Suspect]
     Active Substance: VENLAFAXINE HYDROCHLORIDE
     Dosage: 225 MG, 1X/DAY
     Route: 048
     Dates: start: 20210927, end: 20211008
  5. EFFEXOR [Suspect]
     Active Substance: VENLAFAXINE HYDROCHLORIDE
     Dosage: 37.5 MG, 1X/DAY
     Route: 048
     Dates: start: 20211009, end: 20211014
  6. AMOXAPINE [Suspect]
     Active Substance: AMOXAPINE
     Indication: Depression
     Dosage: 50 MG, 3X/DAY
     Route: 048
     Dates: start: 20210203, end: 20211010
  7. AMOXAPINE [Suspect]
     Active Substance: AMOXAPINE
     Dosage: 25 MG, 3X/DAY
     Route: 048
     Dates: start: 20211011, end: 20211017
  8. OLANZAPINE [Suspect]
     Active Substance: OLANZAPINE
     Indication: Depression
     Dosage: 20 MG, 1X/DAY
     Route: 048
     Dates: start: 20201221, end: 20211008
  9. OLANZAPINE [Suspect]
     Active Substance: OLANZAPINE
     Dosage: 10 MG, 1X/DAY
     Route: 048
     Dates: start: 20211009, end: 20211014
  10. LORAZEPAM [Concomitant]
     Active Substance: LORAZEPAM
     Indication: Depression
     Dosage: 0.5 MG, 2X/DAY
     Route: 048
     Dates: start: 20210819, end: 20211002

REACTIONS (12)
  - Irritability [Unknown]
  - Drug ineffective [Unknown]
  - Anxiety [Unknown]
  - Delusion [Unknown]
  - Feelings of worthlessness [Unknown]
  - Electrocardiogram QT prolonged [Unknown]
  - Drug withdrawal syndrome [Recovered/Resolved]
  - Treatment noncompliance [Unknown]
  - Hyperhidrosis [Unknown]
  - Tachycardia [Unknown]
  - Stupor [Unknown]
  - Tremor [Unknown]

NARRATIVE: CASE EVENT DATE: 20210927
